FAERS Safety Report 16153255 (Version 1)
Quarter: 2019Q2

REPORT INFORMATION
  Report Type: Spontaneous
  Country: US (occurrence: US)
  Receive Date: 20190403
  Receipt Date: 20190403
  Transmission Date: 20190711
  Serious: Yes (Other)
  Sender: FDA-Public Use
  Company Number: US-MYLANLABS-2019M1029901

PATIENT
  Sex: Male

DRUGS (1)
  1. HYDROCORTISONE/PRAMOCAINE [Suspect]
     Active Substance: HYDROCORTISONE\PRAMOXINE
     Indication: PRODUCT USED FOR UNKNOWN INDICATION
     Dosage: UNK

REACTIONS (1)
  - Terminal state [Unknown]
